FAERS Safety Report 6193345-9 (Version None)
Quarter: 2009Q2

REPORT INFORMATION
  Report Type: 
  Country: None (occurrence: None)
  Receive Date: 20090518
  Receipt Date: 20090507
  Transmission Date: 20091009
  Serious: Yes (Other)
  Sender: FDA-Public Use
  Company Number: US-JNJFOC-20090502034

PATIENT
  Age: 85 Year
  Sex: Female
  Weight: 92.99 kg

DRUGS (13)
  1. TYLENOL (CAPLET) [Suspect]
     Indication: TENDONITIS
     Dosage: 650 MG EVERY 4-6 HOURS
     Route: 048
  2. TYLENOL (CAPLET) [Suspect]
     Indication: PAIN
     Route: 048
  3. CENTRUM SILVER [Concomitant]
     Indication: MEDICAL DIET
  4. CALTRATE-D [Concomitant]
     Indication: MEDICAL DIET
  5. PLAVIX [Concomitant]
     Indication: BLOOD CHOLESTEROL ABNORMAL
  6. PLAVIX [Concomitant]
     Indication: CARDIAC DISORDER
  7. LEVOTHYROXINE SODIUM [Concomitant]
     Indication: THYROID DISORDER
  8. METOPROLOL [Concomitant]
     Indication: HYPERTENSION
  9. VITAMIN B-12 [Concomitant]
     Indication: MEDICAL DIET
  10. SINGULAIR [Concomitant]
     Indication: MULTIPLE ALLERGIES
  11. PAROXETINE [Concomitant]
     Indication: DEPRESSION
  12. PREDNISONE [Concomitant]
     Indication: INFLAMMATION
  13. PREDNISONE [Concomitant]
     Indication: PAIN

REACTIONS (1)
  - DISORIENTATION [None]
